FAERS Safety Report 19520116 (Version 8)
Quarter: 2021Q4

REPORT INFORMATION
  Report Type: Report from Study
  Country: PL (occurrence: PL)
  Receive Date: 20210712
  Receipt Date: 20211011
  Transmission Date: 20220304
  Serious: Yes (Death, Other)
  Sender: FDA-Public Use
  Company Number: PL-PFIZER INC-2021818767

PATIENT
  Age: 45 Year
  Sex: Male

DRUGS (5)
  1. FILGRASTIM [Suspect]
     Active Substance: FILGRASTIM
     Indication: Hairy cell leukaemia
     Dosage: UNK
  2. RITUXIMAB [Suspect]
     Active Substance: RITUXIMAB
     Indication: Hairy cell leukaemia
     Dosage: 375 MG/M2, DAILY, ONDE DOSE
     Route: 042
  3. CLADRIBINE [Suspect]
     Active Substance: CLADRIBINE
     Indication: Hairy cell leukaemia
     Dosage: 0.12 MG/KG, DAILY FOR FIVE DAYS EACH
     Route: 042
     Dates: start: 199410, end: 201305
  4. MOXETUMOMAB PASUDOTOX [Suspect]
     Active Substance: MOXETUMOMAB PASUDOTOX
     Indication: Hairy cell leukaemia
     Dosage: 40 UG/KG IV 3 EVERY 28 D FOR 6
     Route: 042
     Dates: start: 201601
  5. VEMURAFENIB [Suspect]
     Active Substance: VEMURAFENIB
     Indication: Hairy cell leukaemia
     Dosage: 960 MG, 2X/DAY
     Route: 048

REACTIONS (5)
  - Pneumonia [Fatal]
  - Septic shock [Fatal]
  - Pseudomonas infection [Fatal]
  - Multiple organ dysfunction syndrome [Fatal]
  - Neutrophil count decreased [Fatal]
